FAERS Safety Report 24250289 (Version 2)
Quarter: 2024Q3

REPORT INFORMATION
  Report Type: Report from Study
  Country: IE (occurrence: IE)
  Receive Date: 20240826
  Receipt Date: 20240830
  Transmission Date: 20241017
  Serious: Yes (Other)
  Sender: NOVARTIS
  Company Number: IE-002147023-NVSC2024IE171153

PATIENT
  Sex: Male

DRUGS (2)
  1. KESIMPTA [Suspect]
     Active Substance: OFATUMUMAB
     Indication: Relapsing-remitting multiple sclerosis
     Dosage: 20 MG, QW (ONCE WEEKLY FOR WEEKS 0,1,2 AND 4)
     Route: 058
     Dates: start: 20240415
  2. KESIMPTA [Suspect]
     Active Substance: OFATUMUMAB
     Dosage: 20 MG, QMO (ONCE MONTHLY)
     Route: 058
     Dates: start: 20240415

REACTIONS (3)
  - Device malfunction [Not Recovered/Not Resolved]
  - Device malfunction [Not Recovered/Not Resolved]
  - Drug dose omission by device [Unknown]

NARRATIVE: CASE EVENT DATE: 20240813
